APPROVED DRUG PRODUCT: PREDNISOLONE
Active Ingredient: PREDNISOLONE
Strength: 15MG/5ML
Dosage Form/Route: SOLUTION;ORAL
Application: A040322 | Product #001
Applicant: TEVA PHARMACEUTICALS USA
Approved: Jan 19, 2000 | RLD: No | RS: No | Type: DISCN